FAERS Safety Report 5562820-X (Version None)
Quarter: 2007Q4

REPORT INFORMATION
  Report Type: 
  Country: None (occurrence: None)
  Receive Date: 20071217
  Receipt Date: 20071210
  Transmission Date: 20080405
  Serious: Yes (Hospitalization)
  Sender: FDA-Public Use
  Company Number: PHRM2007FR02801

PATIENT
  Age: 60 Year
  Sex: Male

DRUGS (18)
  1. RADIOSELECTAN [Suspect]
     Indication: CHOLANGIOGRAM
     Dosage: 1 DF, ONCE/SINGLE
     Route: 025
     Dates: start: 20071001, end: 20071001
  2. TAGAMET [Suspect]
     Route: 048
     Dates: start: 20071001
  3. ISOFLURANE [Suspect]
     Indication: BILE DUCT STENT INSERTION
     Dosage: 1 DF, ONCE/SINGLE
     Dates: start: 20071001, end: 20071001
  4. PROPOFOL [Suspect]
     Dates: start: 20071001, end: 20071001
  5. CELOCURIN [Suspect]
     Dosage: 100 MG, UNK
     Dates: start: 20071001, end: 20071001
  6. PERFALGAN [Suspect]
     Dosage: 1 G, ONCE/SINGLE
     Dates: start: 20071001, end: 20071001
  7. TAVANIC [Suspect]
     Dates: start: 20070920
  8. CERTICAN [Concomitant]
     Indication: LIVER TRANSPLANT
     Dates: start: 20070601
  9. SEROPRAM [Concomitant]
  10. CORTANCYL [Concomitant]
  11. URSOLVAN-200 [Concomitant]
  12. RENITEC [Concomitant]
  13. LOXEN [Concomitant]
  14. DETENSIEL [Concomitant]
  15. ZELITREX [Concomitant]
  16. INIPOMP [Concomitant]
  17. NEORAL [Suspect]
     Indication: LIVER TRANSPLANT
     Dosage: 175 MG, BID
     Route: 048
     Dates: start: 20061101, end: 20070601
  18. NEORAL [Suspect]
     Dosage: 25 MG, BID
     Route: 048

REACTIONS (7)
  - ANGIOEDEMA [None]
  - BILE DUCT STENT INSERTION [None]
  - CHOLANGIOGRAM [None]
  - CHOLESTASIS [None]
  - DYSPNOEA [None]
  - PYREXIA [None]
  - TONGUE OEDEMA [None]
